FAERS Safety Report 10408694 (Version 1)
Quarter: 2014Q3

REPORT INFORMATION
  Report Type: Spontaneous
  Country: US (occurrence: None)
  Receive Date: 20140825
  Receipt Date: 20140825
  Transmission Date: 20150326
  Serious: No
  Sender: FDA-Public Use
  Company Number: None

PATIENT
  Sex: Female
  Weight: 68.04 kg

DRUGS (1)
  1. LEVOTHYROXINE [Suspect]
     Active Substance: LEVOTHYROXINE
     Indication: HYPOTHYROIDISM
     Dosage: 112 MCG ONE TABLET DAILY

REACTIONS (4)
  - Blood thyroid stimulating hormone abnormal [None]
  - Thyroxine free abnormal [None]
  - Weight fluctuation [None]
  - Temperature intolerance [None]
